FAERS Safety Report 15599589 (Version 5)
Quarter: 2018Q4

REPORT INFORMATION
  Report Type: Spontaneous
  Country: DE (occurrence: DE)
  Receive Date: 20181108
  Receipt Date: 20181219
  Transmission Date: 20190205
  Serious: Yes (Other)
  Sender: FDA-Public Use
  Company Number: DE-B.I. PHARMACEUTICALS,INC./RIDGEFIELD-2018-BI-054407

PATIENT
  Age: 81 Year
  Sex: Male

DRUGS (20)
  1. NOVORAPID [Suspect]
     Active Substance: INSULIN ASPART
     Dosage: 24 IN THE MORNING, 18 AT NOON AND 20 IN THE EVENING
     Route: 065
     Dates: start: 2018
  2. AMLODIPIN [Suspect]
     Active Substance: AMLODIPINE BESYLATE
     Dosage: TAKING IN THE MORNING AN DIN EVENING
     Route: 065
     Dates: start: 2018
  3. CALCITRIOL. [Concomitant]
     Active Substance: CALCITRIOL
     Indication: PRODUCT USED FOR UNKNOWN INDICATION
     Dosage: AT EVENING
     Route: 065
     Dates: start: 2014
  4. VALSACOR [Suspect]
     Active Substance: VALSARTAN
     Indication: PRODUCT USED FOR UNKNOWN INDICATION
     Dosage: 160 MG IN THE MORNING
     Route: 065
     Dates: start: 2014
  5. TORASEMIDE [Suspect]
     Active Substance: TORSEMIDE
     Route: 065
     Dates: start: 2014
  6. ALLOPURINOL. [Suspect]
     Active Substance: ALLOPURINOL
     Indication: PRODUCT USED FOR UNKNOWN INDICATION
     Route: 065
     Dates: start: 2014
  7. AMLODIPIN [Suspect]
     Active Substance: AMLODIPINE BESYLATE
     Indication: PRODUCT USED FOR UNKNOWN INDICATION
     Route: 065
     Dates: start: 2014
  8. ASPIRIN. [Suspect]
     Active Substance: ASPIRIN
     Indication: PRODUCT USED FOR UNKNOWN INDICATION
     Route: 065
     Dates: start: 2014
  9. SIMVASTATIN. [Suspect]
     Active Substance: SIMVASTATIN
     Indication: PRODUCT USED FOR UNKNOWN INDICATION
     Route: 065
     Dates: start: 2014
  10. PANTOPRAZOLE [Suspect]
     Active Substance: PANTOPRAZOLE
     Indication: PROPHYLAXIS AGAINST GASTROINTESTINAL ULCER
     Route: 065
     Dates: start: 2018
  11. METAMIZOLE SODIUM [Suspect]
     Active Substance: METAMIZOLE SODIUM
     Indication: PRODUCT USED FOR UNKNOWN INDICATION
     Dosage: IF NECESSARY 2 TO 3X DAILY 20-30 DROPS
     Route: 065
     Dates: start: 2014
  12. VALSACOR [Suspect]
     Active Substance: VALSARTAN
     Route: 065
     Dates: start: 20180903, end: 20181009
  13. TORASEMIDE [Suspect]
     Active Substance: TORSEMIDE
     Indication: PRODUCT USED FOR UNKNOWN INDICATION
     Route: 065
     Dates: start: 2012
  14. NOVORAPID [Suspect]
     Active Substance: INSULIN ASPART
     Indication: PRODUCT USED FOR UNKNOWN INDICATION
     Dosage: IN THE MORNING, AT NOON AND IN THE EVENING
     Route: 065
     Dates: start: 2012
  15. LANTUS [Suspect]
     Active Substance: INSULIN GLARGINE
     Route: 065
     Dates: start: 2018
  16. TAMSULOSINA [Suspect]
     Active Substance: TAMSULOSIN HYDROCHLORIDE
     Indication: PRODUCT USED FOR UNKNOWN INDICATION
     Route: 065
     Dates: start: 2014
  17. NOVORAPID [Suspect]
     Active Substance: INSULIN ASPART
     Dosage: 24 IN THE MORNING, 18 AT NOON AND 20 IN THE EVENING
     Route: 065
     Dates: start: 2014
  18. ALLOPURINOL. [Suspect]
     Active Substance: ALLOPURINOL
     Route: 065
     Dates: start: 2018
  19. LANTUS [Suspect]
     Active Substance: INSULIN GLARGINE
     Indication: PRODUCT USED FOR UNKNOWN INDICATION
     Route: 065
     Dates: start: 2014
  20. CANDESARTAN. [Suspect]
     Active Substance: CANDESARTAN
     Indication: PRODUCT USED FOR UNKNOWN INDICATION
     Dosage: 16 MG QD
     Route: 065
     Dates: start: 20181009

REACTIONS (13)
  - Spinal pain [Unknown]
  - Muscle spasms [Unknown]
  - Asthenia [Unknown]
  - Chest discomfort [Unknown]
  - Peripheral swelling [Unknown]
  - Rectal tenesmus [Unknown]
  - Pelvic pain [Unknown]
  - Skin haemorrhage [Unknown]
  - Dyspnoea exertional [Unknown]
  - Myalgia [Unknown]
  - Blood glucose increased [Unknown]
  - Dyspnoea [Unknown]
  - Nausea [Unknown]

NARRATIVE: CASE EVENT DATE: 201809
